FAERS Safety Report 7509761-6 (Version None)
Quarter: 2011Q2

REPORT INFORMATION
  Report Type: 
  Country: None (occurrence: None)
  Receive Date: 20110527
  Receipt Date: 20110523
  Transmission Date: 20111010
  Serious: Yes (Other)
  Sender: FDA-Public Use
  Company Number: TR-ROXANE LABORATORIES, INC.-2011-RO-00702RO

PATIENT
  Age: 35 Year
  Sex: Male

DRUGS (2)
  1. LIDOCAINE [Suspect]
     Indication: ANAESTHESIA
     Dosage: 40 MG
  2. EPINEPHRINE [Suspect]
     Indication: ANAESTHESIA
     Dosage: 0.025 MCG

REACTIONS (2)
  - DIPLOPIA [None]
  - IVTH NERVE PARALYSIS [None]
